FAERS Safety Report 8578692-5 (Version None)
Quarter: 2012Q3

REPORT INFORMATION
  Report Type: 
  Country: None (occurrence: None)
  Receive Date: 20120726
  Receipt Date: 20120711
  Transmission Date: 20120928
  Serious: Yes (Death, Life-Threatening, Hospitalization, Other)
  Sender: FDA-Public Use
  Company Number: 2012MA008616

PATIENT
  Age: 5 Year
  Sex: Male

DRUGS (1)
  1. FENTANYL [Suspect]
     Dates: start: 20100101

REACTIONS (20)
  - HEART RATE INCREASED [None]
  - HYPOXIC-ISCHAEMIC ENCEPHALOPATHY [None]
  - BLOOD CREATINE PHOSPHOKINASE INCREASED [None]
  - PUPIL FIXED [None]
  - ASPARTATE AMINOTRANSFERASE INCREASED [None]
  - BRAIN OEDEMA [None]
  - RETINAL HAEMORRHAGE [None]
  - BLOOD PH DECREASED [None]
  - BLOOD GLUCOSE INCREASED [None]
  - ACCIDENTAL DEATH [None]
  - DEPRESSED LEVEL OF CONSCIOUSNESS [None]
  - ELECTROCARDIOGRAM QT PROLONGED [None]
  - AREFLEXIA [None]
  - ALANINE AMINOTRANSFERASE INCREASED [None]
  - DYSPNOEA [None]
  - CARDIAC ARREST [None]
  - ACCIDENTAL EXPOSURE [None]
  - CYANOSIS [None]
  - PULSE ABSENT [None]
  - BLOOD UREA INCREASED [None]
